FAERS Safety Report 21606278 (Version 1)
Quarter: 2022Q4

REPORT INFORMATION
  Report Type: Spontaneous
  Country: ES (occurrence: ES)
  Receive Date: 20221117
  Receipt Date: 20221117
  Transmission Date: 20230113
  Serious: Yes (Hospitalization)
  Sender: FDA-Public Use
  Company Number: ES-AEMPS-1285102

PATIENT
  Age: 73 Year
  Sex: Male

DRUGS (3)
  1. TRAMADOL [Suspect]
     Active Substance: TRAMADOL
     Indication: Peripheral ischaemia
     Dosage: 150 MILLIGRAM, TWO TIMES A DAY (150.0 MG C/12 H)
     Route: 048
     Dates: start: 20220127, end: 20220201
  2. PARACETAMOL CINFA [Concomitant]
     Indication: Arthralgia
     Dosage: 650 MILLIGRAM
     Route: 048
     Dates: start: 20191218
  3. SIMVASTATINA CINFA [Concomitant]
     Indication: Type IIa hyperlipidaemia
     Dosage: 20 MILLIGRAM (20.0 MG CE)
     Route: 048
     Dates: start: 20200117

REACTIONS (3)
  - Confusional state [Recovered/Resolved]
  - Speech disorder [Recovered/Resolved]
  - Cognitive disorder [Recovered/Resolved]

NARRATIVE: CASE EVENT DATE: 20220201
